FAERS Safety Report 10525177 (Version 2)
Quarter: 2014Q4

REPORT INFORMATION
  Report Type: Spontaneous
  Country: US (occurrence: US)
  Receive Date: 20141017
  Receipt Date: 20141107
  Transmission Date: 20150528
  Serious: Yes (Hospitalization)
  Sender: FDA-Public Use
  Company Number: US-GLAXOSMITHKLINE-US2014GSK007261

PATIENT
  Age: 48 Year
  Sex: Female

DRUGS (3)
  1. FLOLAN [Suspect]
     Active Substance: EPOPROSTENOL SODIUM
     Indication: ATRIAL SEPTAL DEFECT
     Dosage: UNK
  2. WARFARIN [Concomitant]
     Active Substance: WARFARIN
  3. FLOLAN [Suspect]
     Active Substance: EPOPROSTENOL SODIUM
     Indication: COR PULMONALE CHRONIC
     Dosage: UNK, CO
     Route: 042
     Dates: start: 20040526

REACTIONS (2)
  - Medical device complication [Unknown]
  - Medical device change [Unknown]

NARRATIVE: CASE EVENT DATE: 20141003
